FAERS Safety Report 7898041-5 (Version None)
Quarter: 2011Q4

REPORT INFORMATION
  Report Type: 
  Country: None (occurrence: None)
  Receive Date: 20111107
  Receipt Date: 20111107
  Transmission Date: 20120403
  Serious: No
  Sender: FDA-Public Use
  Company Number: None

PATIENT
  Age: 69 Year
  Sex: Female
  Weight: 78.925 kg

DRUGS (1)
  1. LIDOCAINE [Suspect]
     Indication: SURGERY
     Dosage: D/N
     Route: 013
     Dates: start: 20110331, end: 20110615

REACTIONS (5)
  - BLOOD PRESSURE INCREASED [None]
  - IMPAIRED DRIVING ABILITY [None]
  - DIZZINESS [None]
  - FEELING ABNORMAL [None]
  - GAIT DISTURBANCE [None]
